FAERS Safety Report 7063960-9 (Version None)
Quarter: 2010Q4

REPORT INFORMATION
  Report Type: 
  Country: None (occurrence: None)
  Receive Date: 20101026
  Receipt Date: 20101006
  Transmission Date: 20110411
  Serious: No
  Sender: FDA-Public Use
  Company Number: US-ABBOTT-10P-163-0677214-00

PATIENT
  Sex: Female
  Weight: 113.5 kg

DRUGS (3)
  1. LUPRON DEPOT [Suspect]
     Indication: UTERINE LEIOMYOMA
     Route: 030
     Dates: start: 19990101
  2. LUPRON DEPOT [Suspect]
     Route: 030
     Dates: start: 20101001, end: 20101004
  3. ALLI [Concomitant]
     Indication: WEIGHT DECREASED

REACTIONS (2)
  - RASH [None]
  - SWELLING [None]
